FAERS Safety Report 8562933-4 (Version None)
Quarter: 2012Q3

REPORT INFORMATION
  Report Type: 
  Country: None (occurrence: None)
  Receive Date: 20120802
  Receipt Date: 20120719
  Transmission Date: 20120928
  Serious: No
  Sender: FDA-Public Use
  Company Number: US-AMGEN-USASP2012044917

PATIENT
  Age: 56 Year
  Sex: Female

DRUGS (2)
  1. ENBREL [Suspect]
     Indication: RHEUMATOID ARTHRITIS
     Dosage: 50 MG, QWK
     Dates: start: 20120703
  2. METHOTREXATE [Concomitant]
     Dosage: 3 MG, UNK
     Dates: start: 20100101

REACTIONS (2)
  - ABDOMINAL PAIN [None]
  - ABDOMINAL DISTENSION [None]
